FAERS Safety Report 4672479-1 (Version None)
Quarter: 2005Q2

REPORT INFORMATION
  Report Type: 
  Country: None (occurrence: None)
  Receive Date: 20050524
  Receipt Date: 20050516
  Transmission Date: 20051028
  Serious: Yes (Hospitalization)
  Sender: FDA-Public Use
  Company Number: US-BOEHRINGER INGELHEIM PHARMACEUTICALS, INC.-2005-BP-08036BP

PATIENT
  Age: 57 Year
  Sex: Female

DRUGS (13)
  1. COMBIVENT [Suspect]
  2. AVELOX [Suspect]
  3. TIAZAC [Suspect]
  4. ESTRACE [Suspect]
  5. LIPITOR [Suspect]
  6. NASACORT [Suspect]
  7. NAPROSYN [Suspect]
  8. LASIX [Suspect]
  9. TOPROL-XL [Suspect]
  10. LISINOPRIL [Suspect]
  11. PREDNISONE [Suspect]
  12. HUMIBID LA [Suspect]
  13. COUMADIN [Suspect]

REACTIONS (3)
  - ABDOMINAL HAEMATOMA [None]
  - ABDOMINAL PAIN [None]
  - BRONCHITIS [None]
